FAERS Safety Report 11825656 (Version 2)
Quarter: 2016Q1

REPORT INFORMATION
  Report Type: Spontaneous
  Country: US (occurrence: US)
  Receive Date: 20151211
  Receipt Date: 20160308
  Transmission Date: 20160525
  Serious: No
  Sender: FDA-Public Use
  Company Number: US-JNJFOC-20150704786

PATIENT
  Age: 69 Year
  Sex: Female

DRUGS (23)
  1. NASONEX [Concomitant]
     Active Substance: MOMETASONE FUROATE
  2. DEXILANT [Concomitant]
     Active Substance: DEXLANSOPRAZOLE
  3. CINNAMON. [Concomitant]
     Active Substance: CINNAMON
  4. GLUCOSAMINE / CHONDROITIN [Concomitant]
  5. MONTELUKAST [Concomitant]
     Active Substance: MONTELUKAST SODIUM
  6. QVAR [Concomitant]
     Active Substance: BECLOMETHASONE DIPROPIONATE
  7. CENTRUM (MINERALS NOS, VITAMINS NOS) [Concomitant]
  8. VITAMIN D3 [Concomitant]
     Active Substance: CHOLECALCIFEROL
  9. SHARK CARTILAGE [Concomitant]
     Active Substance: SHARK CARTILAGE\SHARK, UNSPECIFIED
  10. TURMERIC [Concomitant]
     Active Substance: TURMERIC
  11. OMEGA 3 [Concomitant]
     Active Substance: OMEGA-3 FATTY ACIDS
  12. PROBIOTICS [Concomitant]
     Active Substance: PROBIOTICS NOS
  13. CRANBERRY PILL [Concomitant]
  14. EXTRACT GINGKO BILOBA [Concomitant]
  15. ZITHROMAX [Concomitant]
     Active Substance: AZITHROMYCIN DIHYDRATE
  16. IMBRUVICA [Suspect]
     Active Substance: IBRUTINIB
     Indication: WALDENSTROM^S MACROGLOBULINAEMIA
     Dosage: EXPIRATION DATE- 01-JUL-2015
     Route: 048
     Dates: start: 20150516
  17. VITAMINS [Concomitant]
     Active Substance: VITAMINS
     Indication: SUPPLEMENTATION THERAPY
     Route: 048
  18. CELEBREX [Concomitant]
     Active Substance: CELECOXIB
     Route: 048
  19. CALCIUM [Concomitant]
     Active Substance: CALCIUM
  20. BIOTIN [Concomitant]
     Active Substance: BIOTIN
  21. PREDNISONE. [Concomitant]
     Active Substance: PREDNISONE
  22. PROAIR HFA [Concomitant]
     Active Substance: ALBUTEROL SULFATE
  23. CO-Q10 [Concomitant]

REACTIONS (14)
  - Cough [Unknown]
  - Secretion discharge [Unknown]
  - Middle ear effusion [Unknown]
  - Cataract [Unknown]
  - Abdominal distension [Unknown]
  - Nausea [Recovered/Resolved]
  - Vomiting [Recovered/Resolved]
  - Sinusitis [Recovering/Resolving]
  - Insomnia [Not Recovered/Not Resolved]
  - Constipation [Unknown]
  - Hypoacusis [Unknown]
  - White blood cell count increased [Unknown]
  - Diarrhoea [Not Recovered/Not Resolved]
  - Pain in extremity [Unknown]

NARRATIVE: CASE EVENT DATE: 2015
